FAERS Safety Report 9697821 (Version 2)
Quarter: 2013Q4

REPORT INFORMATION
  Report Type: Spontaneous
  Country: IT (occurrence: IT)
  Receive Date: 20131120
  Receipt Date: 20131129
  Transmission Date: 20140711
  Serious: Yes (Other)
  Sender: FDA-Public Use
  Company Number: IT-ALEXION PHARMACEUTICALS INC.-A201303412

PATIENT
  Age: 19 Year
  Sex: Male
  Weight: 33.2 kg

DRUGS (4)
  1. SOLIRIS 300MG [Suspect]
     Indication: HAEMOLYTIC URAEMIC SYNDROME
     Dosage: 600 MG, QW X 4W
     Route: 042
  2. SOLIRIS 300MG [Suspect]
     Dosage: 900 MG, Q2W
     Route: 042
  3. SOLIRIS 300MG [Suspect]
     Dosage: 900 MG, Q2W
  4. CORTICOSTEROIDS [Concomitant]

REACTIONS (5)
  - Kidney transplant rejection [Unknown]
  - Gastroenteritis [Unknown]
  - Blood creatine increased [Unknown]
  - Dehydration [Unknown]
  - Weight decreased [Unknown]
